FAERS Safety Report 16231330 (Version 1)
Quarter: 2019Q2

REPORT INFORMATION
  Report Type: Spontaneous
  Country: GB (occurrence: GB)
  Receive Date: 20190424
  Receipt Date: 20190424
  Transmission Date: 20190711
  Serious: Yes (Hospitalization)
  Sender: FDA-Public Use
  Company Number: GB-DEXPHARM-20190274

PATIENT
  Age: 82 Year

DRUGS (20)
  1. SERITRALINE [Concomitant]
  2. GLYCEROL [Concomitant]
     Active Substance: GLYCERIN
  3. CO BENELDOPA [Concomitant]
  4. MAIZE STARCH [Concomitant]
  5. TIOTROPIUM [Concomitant]
     Active Substance: TIOTROPIUM
  6. LACTULOSE. [Concomitant]
     Active Substance: LACTULOSE
  7. SPIRONOLACTONE. [Suspect]
     Active Substance: SPIRONOLACTONE
     Indication: PRODUCT USED FOR UNKNOWN INDICATION
  8. BISOPROLOL [Suspect]
     Active Substance: BISOPROLOL
     Indication: PRODUCT USED FOR UNKNOWN INDICATION
  9. SALBUTAMOL [Concomitant]
     Active Substance: ALBUTEROL
     Route: 055
  10. DOCUSATE [Concomitant]
     Active Substance: DOCUSATE
  11. WARFARIN [Concomitant]
     Active Substance: WARFARIN
  12. BISACODYL. [Concomitant]
     Active Substance: BISACODYL
  13. GLYCERIL TRINITRATE [Concomitant]
     Route: 060
  14. DOXAZOSIN [Suspect]
     Active Substance: DOXAZOSIN\DOXAZOSIN MESYLATE
     Indication: PRODUCT USED FOR UNKNOWN INDICATION
  15. PARACETAMOL [Concomitant]
     Active Substance: ACETAMINOPHEN
  16. DARIFENACIN. [Concomitant]
     Active Substance: DARIFENACIN
  17. ISOSORBIDE MONONITRATE. [Suspect]
     Active Substance: ISOSORBIDE MONONITRATE
     Indication: PRODUCT USED FOR UNKNOWN INDICATION
  18. FOSTAIR [Concomitant]
     Active Substance: BECLOMETHASONE\FORMOTEROL
     Dosage: 200MICROGRAMS/DOSE / 6MICROGRAMS
     Route: 055
  19. FUROSEMIDE. [Suspect]
     Active Substance: FUROSEMIDE
     Indication: PRODUCT USED FOR UNKNOWN INDICATION
     Dosage: 200MICROGRAMS/DOSE / 6MICROGRAMS
  20. RAMIPRIL. [Suspect]
     Active Substance: RAMIPRIL
     Indication: PRODUCT USED FOR UNKNOWN INDICATION
     Dosage: 200MICROGRAMS/DOSE / 6MICROGRAMS

REACTIONS (1)
  - Acute kidney injury [Recovering/Resolving]
